FAERS Safety Report 22619383 (Version 1)
Quarter: 2023Q2

REPORT INFORMATION
  Report Type: Spontaneous
  Country: HR (occurrence: HR)
  Receive Date: 20230620
  Receipt Date: 20230620
  Transmission Date: 20230722
  Serious: No
  Sender: FDA-Public Use
  Company Number: HR-002147023-NVSC2023HR055804

PATIENT
  Sex: Female

DRUGS (2)
  1. PROPRANOLOL [Suspect]
     Active Substance: PROPRANOLOL HYDROCHLORIDE
     Indication: Headache
     Dosage: 40 MG, (20 MG, BID)
     Route: 065
  2. PROPRANOLOL [Suspect]
     Active Substance: PROPRANOLOL HYDROCHLORIDE
     Indication: Off label use

REACTIONS (6)
  - Drug intolerance [Unknown]
  - Visual impairment [Unknown]
  - Dizziness [Unknown]
  - Blood pressure decreased [Unknown]
  - Product use in unapproved indication [Unknown]
  - Off label use [Unknown]
